FAERS Safety Report 5106604-5 (Version None)
Quarter: 2006Q3

REPORT INFORMATION
  Report Type: 
  Country: None (occurrence: None)
  Receive Date: 20060918
  Receipt Date: 20060907
  Transmission Date: 20061208
  Serious: Yes (Death)
  Sender: FDA-Public Use
  Company Number: US-KINGPHARMUSA00001-K200601136

PATIENT
  Age: 30 Year
  Sex: Male

DRUGS (1)
  1. BICILLIN L-A [Suspect]
     Indication: CARDIAC DISORDER
     Dosage: 12 LAC IU, QMON
     Route: 030
     Dates: start: 20060823, end: 20060823

REACTIONS (1)
  - DEATH [None]
